FAERS Safety Report 9629387 (Version 1)
Quarter: 2013Q4

REPORT INFORMATION
  Report Type: Spontaneous
  Country: US (occurrence: US)
  Receive Date: 20131017
  Receipt Date: 20131017
  Transmission Date: 20140711
  Serious: No
  Sender: FDA-Public Use
  Company Number: US-ASTRAZENECA-2013SE52009

PATIENT
  Sex: Female

DRUGS (1)
  1. CRESTOR [Suspect]
     Indication: PRODUCT USED FOR UNKNOWN INDICATION
     Dosage: DAILY
     Route: 048
     Dates: start: 2013

REACTIONS (7)
  - Feeling abnormal [Not Recovered/Not Resolved]
  - Perineal pain [Not Recovered/Not Resolved]
  - Visual impairment [Unknown]
  - Bladder discomfort [Not Recovered/Not Resolved]
  - Urinary tract disorder [Unknown]
  - Fatigue [Unknown]
  - Fatigue [Unknown]
